FAERS Safety Report 5523383-8 (Version None)
Quarter: 2007Q4

REPORT INFORMATION
  Report Type: 
  Country: None (occurrence: None)
  Receive Date: 20071121
  Receipt Date: 20071116
  Transmission Date: 20080405
  Serious: Yes (Hospitalization)
  Sender: FDA-Public Use
  Company Number: D0054939A

PATIENT
  Age: 28 Year
  Sex: Male
  Weight: 95 kg

DRUGS (5)
  1. SEROXAT [Suspect]
     Dosage: 150MG SINGLE DOSE
     Route: 048
     Dates: start: 20071027, end: 20071027
  2. ANABOLIC STEROID [Suspect]
     Route: 048
     Dates: start: 20071027, end: 20071027
  3. DOXEPIN HCL [Suspect]
     Route: 048
     Dates: start: 20071027, end: 20071027
  4. EDRONAX [Suspect]
     Route: 048
     Dates: start: 20071027, end: 20071027
  5. PENICILLIN G [Suspect]
     Route: 048
     Dates: start: 20071027, end: 20071027

REACTIONS (7)
  - ACCIDENTAL EXPOSURE [None]
  - ALANINE AMINOTRANSFERASE INCREASED [None]
  - ASPARTATE AMINOTRANSFERASE INCREASED [None]
  - BLOOD LACTATE DEHYDROGENASE INCREASED [None]
  - MYDRIASIS [None]
  - RHABDOMYOLYSIS [None]
  - SOPOR [None]
